FAERS Safety Report 20417287 (Version 1)
Quarter: 2022Q1

REPORT INFORMATION
  Report Type: Spontaneous
  Country: US (occurrence: US)
  Receive Date: 20220202
  Receipt Date: 20220202
  Transmission Date: 20220423
  Serious: Yes (Other)
  Sender: FDA-Public Use
  Company Number: US-GLAXOSMITHKLINE- US2022GSK017359

PATIENT
  Sex: Female

DRUGS (4)
  1. ZANTAC [Suspect]
     Active Substance: RANITIDINE HYDROCHLORIDE
     Indication: Dyspepsia
     Dosage: 25 MG, PER DOSAGE DIRECTIONS
     Dates: start: 199001, end: 201001
  2. ZANTAC [Suspect]
     Active Substance: RANITIDINE HYDROCHLORIDE
     Indication: Dyspepsia
     Dosage: 25 MG, PER DOSAGE DIRECTIONS
     Dates: start: 199001, end: 201001
  3. RANITIDINE [Suspect]
     Active Substance: RANITIDINE
     Indication: Dyspepsia
     Dosage: UNKNOWN AT THIS TIME , PER DOSAGE DIRECTIONS
     Dates: start: 199001, end: 201001
  4. RANITIDINE [Suspect]
     Active Substance: RANITIDINE
     Indication: Dyspepsia
     Dosage: UNKNOWN AT THIS TIME , PER DOSAGE DIRECTIONS
     Dates: start: 199001, end: 201001

REACTIONS (1)
  - Breast cancer [Unknown]
